FAERS Safety Report 5882396-7 (Version None)
Quarter: 2008Q3

REPORT INFORMATION
  Report Type: 
  Country: None (occurrence: None)
  Receive Date: 20080913
  Receipt Date: 20080804
  Transmission Date: 20090109
  Serious: No
  Sender: FDA-Public Use
  Company Number: US-ABBOTT-08P-163-0468403-00

PATIENT
  Sex: Male
  Weight: 81.72 kg

DRUGS (4)
  1. HUMIRA [Suspect]
     Indication: COLITIS ULCERATIVE
     Route: 050
     Dates: start: 20080201
  2. MESALAMINE [Concomitant]
     Indication: COLITIS ULCERATIVE
     Route: 048
     Dates: start: 19980101
  3. ROSUVASTATIN [Concomitant]
     Indication: DRUG USE FOR UNKNOWN INDICATION
     Route: 048
     Dates: start: 20070101
  4. RANITIDINE [Concomitant]
     Indication: DRUG USE FOR UNKNOWN INDICATION
     Route: 048
     Dates: start: 20060101

REACTIONS (3)
  - HERPES ZOSTER [None]
  - PRURITUS [None]
  - TINNITUS [None]
